FAERS Safety Report 15328566 (Version 2)
Quarter: 2018Q3

REPORT INFORMATION
  Report Type: Report from Study
  Country: DE (occurrence: DE)
  Receive Date: 20180829
  Receipt Date: 20180913
  Transmission Date: 20181010
  Serious: Yes (Hospitalization)
  Sender: FDA-Public Use
  Company Number: DE-ROCHE-2175759

PATIENT
  Age: 68 Year
  Sex: Female
  Weight: 71 kg

DRUGS (17)
  1. MONURIL [Concomitant]
     Active Substance: FOSFOMYCIN SODIUM
     Indication: RETINAL VASCULAR THROMBOSIS
     Route: 065
     Dates: start: 20180118
  2. SPASMEX (GERMANY) [Concomitant]
     Indication: STRESS URINARY INCONTINENCE
     Route: 065
  3. CARVEDILOL. [Concomitant]
     Active Substance: CARVEDILOL
     Indication: HYPERTENSION
     Route: 065
  4. COTRIM [Concomitant]
     Active Substance: SULFAMETHOXAZOLE\TRIMETHOPRIM
     Indication: PROPHYLAXIS
     Route: 065
     Dates: start: 20160801
  5. CANDESARTAN HCT [Concomitant]
     Active Substance: CANDESARTAN CILEXETIL\HYDROCHLOROTHIAZIDE
     Indication: HYPERTENSION
     Dosage: 32+25 MG
     Route: 065
     Dates: start: 20161126
  6. OMEPRAZOL [Concomitant]
     Active Substance: OMEPRAZOLE
     Indication: PROPHYLAXIS
     Route: 065
  7. UNIZINK [Concomitant]
     Active Substance: AVOBENZONE\HOMOSALATE\OCTISALATE
     Indication: ONYCHOCLASIS
     Route: 065
     Dates: start: 20170622
  8. LUMIGAN [Concomitant]
     Active Substance: BIMATOPROST
     Indication: RETINAL VASCULAR THROMBOSIS
     Route: 065
     Dates: start: 20170911
  9. ASPIRIN. [Concomitant]
     Active Substance: ASPIRIN
     Indication: RETINAL VASCULAR THROMBOSIS
     Route: 065
     Dates: start: 20170912
  10. BIOTIN [Concomitant]
     Active Substance: BIOTIN
     Indication: ONYCHOCLASIS
     Route: 065
     Dates: start: 20170622
  11. BAYOTENSIN [Concomitant]
     Active Substance: NITRENDIPINE
     Indication: INTERVERTEBRAL DISC PROTRUSION
     Route: 065
     Dates: start: 20170711
  12. PREDNISOLON [Concomitant]
     Active Substance: PREDNISOLONE
     Indication: PROPHYLAXIS
     Route: 065
     Dates: start: 20170309
  13. OBINUTUZUMAB. [Suspect]
     Active Substance: OBINUTUZUMAB
     Indication: B-CELL LYMPHOMA
     Dosage: MOST RECENT APPLICATION OF OBINUTUZUMAB (GA 101) WAS ON 14/JUN/2018
     Route: 041
     Dates: start: 20160711, end: 20180614
  14. IBRUTINIB [Suspect]
     Active Substance: IBRUTINIB
     Indication: B-CELL LYMPHOMA
     Dosage: LAST DOSE PRIOR TO SAE ON 13/SEP/2017
     Route: 048
     Dates: start: 20160711, end: 20170913
  15. ACEMETACIN [Concomitant]
     Active Substance: ACEMETACIN
     Indication: OSTEOARTHRITIS
     Route: 065
  16. PARACETAMOL [Concomitant]
     Active Substance: ACETAMINOPHEN
     Indication: PROPHYLAXIS
     Route: 065
     Dates: start: 20170112
  17. TAVEGIL [Concomitant]
     Active Substance: CLEMASTINE FUMARATE
     Indication: PROPHYLAXIS
     Route: 065
     Dates: start: 20170309

REACTIONS (1)
  - Humerus fracture [Not Recovered/Not Resolved]

NARRATIVE: CASE EVENT DATE: 20180715
